FAERS Safety Report 4712953-2 (Version None)
Quarter: 2005Q3

REPORT INFORMATION
  Report Type: 
  Country: None (occurrence: None)
  Receive Date: 20050712
  Receipt Date: 20050712
  Transmission Date: 20060218
  Serious: Yes (Disabling)
  Sender: FDA-Public Use
  Company Number: None

PATIENT
  Age: 79 Year
  Sex: Female
  Weight: 58.9676 kg

DRUGS (7)
  1. LEVOFLOXACIN [Suspect]
     Dates: start: 20050107, end: 20050112
  2. FOSAMAX [Concomitant]
  3. FUROSEMIDE [Concomitant]
  4. NORVASC [Concomitant]
  5. QUININE SULFATE [Concomitant]
  6. ECOTRIN [Concomitant]
  7. OSCAL [Concomitant]

REACTIONS (3)
  - OEDEMA PERIPHERAL [None]
  - PAIN IN EXTREMITY [None]
  - TENDON DISORDER [None]
